FAERS Safety Report 5894662-X (Version None)
Quarter: 2008Q3

REPORT INFORMATION
  Report Type: 
  Country: None (occurrence: None)
  Receive Date: 20080922
  Receipt Date: 20080909
  Transmission Date: 20090109
  Serious: Yes (Hospitalization)
  Sender: FDA-Public Use
  Company Number: 2006BI011769

PATIENT
  Age: 45 Year
  Sex: Female

DRUGS (2)
  1. AVONEX [Suspect]
     Indication: MULTIPLE SCLEROSIS
     Dosage: 30 UG;QW;IM; 30 UG;QW;IM
     Route: 030
     Dates: start: 20000401, end: 20030701
  2. AVONEX [Suspect]
     Indication: MULTIPLE SCLEROSIS
     Dosage: 30 UG;QW;IM; 30 UG;QW;IM
     Route: 030
     Dates: start: 20030801

REACTIONS (3)
  - DECUBITUS ULCER [None]
  - FRACTURED COCCYX [None]
  - SKIN GRAFT [None]
